FAERS Safety Report 12241340 (Version 1)
Quarter: 2016Q2

REPORT INFORMATION
  Report Type: Spontaneous
  Country: US (occurrence: None)
  Receive Date: 20160405
  Receipt Date: 20160405
  Transmission Date: 20160815
  Serious: Yes (Life-Threatening, Hospitalization, Other)
  Sender: FDA-Public Use
  Company Number: None

PATIENT
  Age: 56 Year
  Sex: Female
  Weight: 64.41 kg

DRUGS (4)
  1. HALDOL [Suspect]
     Active Substance: HALOPERIDOL
     Indication: DRUG THERAPY
     Dosage: MISDIAGNOSIS/DRUG FORCED ON ME
  2. ESCITALOPRAM [Suspect]
     Active Substance: ESCITALOPRAM OXALATE
  3. TRAZODONE [Suspect]
     Active Substance: TRAZODONE HYDROCHLORIDE
  4. BUPROPION. [Suspect]
     Active Substance: BUPROPION

REACTIONS (9)
  - White blood cells urine positive [None]
  - Seizure [None]
  - Platelet count decreased [None]
  - Anion gap decreased [None]
  - Blood urine present [None]
  - Blood creatinine decreased [None]
  - Dehydration [None]
  - Chromaturia [None]
  - Blood potassium decreased [None]

NARRATIVE: CASE EVENT DATE: 20140820
